FAERS Safety Report 9802971 (Version 1)
Quarter: 2014Q1

REPORT INFORMATION
  Report Type: Spontaneous
  Country: US (occurrence: None)
  Receive Date: 20140102
  Receipt Date: 20140102
  Transmission Date: 20141002
  Serious: Yes (Other)
  Sender: FDA-Public Use
  Company Number: 1969278

PATIENT
  Age: 69 Year
  Sex: Male

DRUGS (2)
  1. CARBOPLATIN [Suspect]
     Indication: SQUAMOUS CELL CARCINOMA
     Route: 042
     Dates: start: 20101215, end: 20101222
  2. PACLITAXEL [Suspect]
     Route: 042
     Dates: start: 20101215, end: 20101215

REACTIONS (3)
  - Urticaria [None]
  - Asthma [None]
  - Erythema [None]
